FAERS Safety Report 5796334-9 (Version None)
Quarter: 2008Q2

REPORT INFORMATION
  Report Type: 
  Country: None (occurrence: None)
  Receive Date: 20080618
  Receipt Date: 20070906
  Transmission Date: 20081010
  Serious: Yes (Other)
  Sender: FDA-Public Use
  Company Number: 200715011US

PATIENT
  Age: 59 Year
  Sex: Female
  Weight: 84.54 kg

DRUGS (7)
  1. LANTUS [Suspect]
     Indication: TYPE 1 DIABETES MELLITUS
     Dosage: 40 U QD
     Dates: end: 20070701
  2. LANTUS [Suspect]
     Indication: TYPE 1 DIABETES MELLITUS
     Dosage: 60 U HS
     Dates: start: 20070701
  3. HUMALOG [Concomitant]
  4. ALLOPURINOL [Concomitant]
  5. LIPITOR [Concomitant]
  6. ADENOSINE (TRICOR /00090101/) [Concomitant]
  7. VALSARTAN (DIOVANE) [Concomitant]

REACTIONS (4)
  - HYPOGLYCAEMIA [None]
  - HYPOGLYCAEMIC SEIZURE [None]
  - MOUTH INJURY [None]
  - TONGUE BITING [None]
